FAERS Safety Report 6807329-8 (Version None)
Quarter: 2010Q2

REPORT INFORMATION
  Report Type: 
  Country: None (occurrence: None)
  Receive Date: 20100629
  Receipt Date: 20080908
  Transmission Date: 20101027
  Serious: No
  Sender: FDA-Public Use
  Company Number: US-PFIZER INC-2008072024

PATIENT
  Sex: Male
  Weight: 119.09 kg

DRUGS (6)
  1. VIAGRA [Suspect]
     Indication: ERECTILE DYSFUNCTION
     Dates: start: 19980101
  2. COLCHICINE [Concomitant]
  3. DIGOXIN [Concomitant]
  4. WARFARIN [Concomitant]
  5. DARVOCET [Concomitant]
  6. OMEGA-3 MARINE TRIGLYCERIDES [Concomitant]

REACTIONS (2)
  - DRUG INEFFECTIVE [None]
  - NASAL CONGESTION [None]
